FAERS Safety Report 17839572 (Version 8)
Quarter: 2022Q2

REPORT INFORMATION
  Report Type: Spontaneous
  Country: CA (occurrence: CA)
  Receive Date: 20200529
  Receipt Date: 20220622
  Transmission Date: 20220721
  Serious: Yes (Other)
  Sender: FDA-Public Use
  Company Number: CA-PFIZER INC-2019497568

PATIENT
  Age: 37 Year
  Sex: Male

DRUGS (3)
  1. SOMAVERT [Suspect]
     Active Substance: PEGVISOMANT
     Indication: Acromegaly
     Dosage: 20 MG, DAILY
     Route: 058
     Dates: start: 20190721, end: 2020
  2. SOMAVERT [Suspect]
     Active Substance: PEGVISOMANT
     Dosage: 30 MG, 1X/DAY
     Route: 058
     Dates: start: 2020
  3. AMLODIPINE [Concomitant]
     Active Substance: AMLODIPINE BESYLATE
     Indication: Hypertension
     Dosage: 10 MG

REACTIONS (7)
  - Pneumonia [Unknown]
  - Injection site pain [Not Recovered/Not Resolved]
  - Fear of disease [Unknown]
  - Incorrect dose administered by device [Unknown]
  - Complication of device removal [Unknown]
  - Headache [Not Recovered/Not Resolved]
  - Product administered at inappropriate site [Unknown]
